FAERS Safety Report 22535409 (Version 1)
Quarter: 2023Q2

REPORT INFORMATION
  Report Type: Report from Study
  Country: US (occurrence: US)
  Receive Date: 20230608
  Receipt Date: 20230608
  Transmission Date: 20230722
  Serious: Yes (Other)
  Sender: FDA-Public Use
  Company Number: US-JNJFOC-20230601513

PATIENT
  Age: 42 Year
  Sex: Male

DRUGS (2)
  1. SPRAVATO [Suspect]
     Active Substance: ESKETAMINE
     Indication: Depression
     Dosage: 56 MG, 4 DOSES
     Dates: start: 20230515, end: 20230524
  2. SPRAVATO [Suspect]
     Active Substance: ESKETAMINE
     Dates: start: 20230530, end: 20230530

REACTIONS (3)
  - Hallucination [Unknown]
  - Euphoric mood [Unknown]
  - Dysgeusia [Unknown]

NARRATIVE: CASE EVENT DATE: 20230501
